FAERS Safety Report 5811792-9 (Version None)
Quarter: 2008Q3

REPORT INFORMATION
  Report Type: 
  Country: None (occurrence: None)
  Receive Date: 20080714
  Receipt Date: 20080703
  Transmission Date: 20090109
  Serious: Yes (Disabling)
  Sender: FDA-Public Use
  Company Number: POMP-1000205

PATIENT
  Sex: Male
  Weight: 90 kg

DRUGS (3)
  1. MYOZYME [Suspect]
     Indication: GLYCOGEN STORAGE DISEASE TYPE II
     Dosage: 20 MG/KG, Q2W
     Dates: start: 20060313
  2. CLEMANIL (CLEMASTINE FUMARATE) [Concomitant]
  3. HYDROCORTISONE [Concomitant]

REACTIONS (5)
  - DISEASE PROGRESSION [None]
  - FALL [None]
  - FATIGUE [None]
  - HYPERCAPNIA [None]
  - MUSCULAR WEAKNESS [None]
